FAERS Safety Report 14490604 (Version 3)
Quarter: 2021Q1

REPORT INFORMATION
  Report Type: Spontaneous
  Country: US (occurrence: US)
  Receive Date: 20180206
  Receipt Date: 20210120
  Transmission Date: 20210419
  Serious: No
  Sender: FDA-Public Use
  Company Number: US-009507513-1801USA012986

PATIENT
  Sex: Female

DRUGS (1)
  1. GANIRELIX ACETATE. [Suspect]
     Active Substance: GANIRELIX ACETATE
     Indication: INFERTILITY FEMALE
     Dosage: STRENGTH 250MCG/0.5M, 250 MICROGRAM, QD
     Route: 058
     Dates: start: 20180112

REACTIONS (4)
  - Peripheral swelling [Unknown]
  - Arthritis [Unknown]
  - Arthralgia [Unknown]
  - Maternal exposure before pregnancy [Unknown]
